FAERS Safety Report 9904200 (Version 1)
Quarter: 2014Q1

REPORT INFORMATION
  Report Type: Report from Study
  Country: FR (occurrence: FR)
  Receive Date: 20140218
  Receipt Date: 20140218
  Transmission Date: 20141002
  Serious: Yes (Hospitalization, Other)
  Sender: FDA-Public Use
  Company Number: FR-ROCHE-1346253

PATIENT
  Sex: Female

DRUGS (16)
  1. RITUXIMAB [Suspect]
     Indication: RHEUMATOID ARTHRITIS
     Dosage: DAY 1
     Route: 065
     Dates: start: 20070530
  2. RITUXIMAB [Suspect]
     Dosage: DAY 15
     Route: 065
     Dates: start: 20070614
  3. RITUXIMAB [Suspect]
     Dosage: DAY 1
     Route: 065
     Dates: start: 20080717
  4. RITUXIMAB [Suspect]
     Dosage: DAY 15
     Route: 065
     Dates: start: 20080731
  5. RITUXIMAB [Suspect]
     Dosage: DAY 1
     Route: 065
     Dates: start: 20090921
  6. RITUXIMAB [Suspect]
     Dosage: DAY 15
     Route: 065
     Dates: start: 20091006
  7. RITUXIMAB [Suspect]
     Dosage: DAY 1
     Route: 065
     Dates: start: 20100708
  8. RITUXIMAB [Suspect]
     Route: 065
     Dates: start: 20100726
  9. RITUXIMAB [Suspect]
     Dosage: DAY 1
     Route: 065
     Dates: start: 20110711
  10. RITUXIMAB [Suspect]
     Route: 065
     Dates: start: 20110726
  11. RITUXIMAB [Suspect]
     Route: 065
     Dates: start: 20120213
  12. INFLIXIMAB [Concomitant]
  13. METHOTREXATE [Concomitant]
     Route: 065
  14. METHOTREXATE [Concomitant]
     Route: 065
  15. CORTANCYL [Concomitant]
     Route: 065
  16. CORTANCYL [Concomitant]
     Route: 065

REACTIONS (5)
  - Agoraphobia [Unknown]
  - Paranoia [Unknown]
  - Infusion related reaction [Recovered/Resolved]
  - Bronchitis [Not Recovered/Not Resolved]
  - Productive cough [Recovered/Resolved]
